FAERS Safety Report 25807341 (Version 1)
Quarter: 2025Q3

REPORT INFORMATION
  Report Type: Spontaneous
  Country: US (occurrence: US)
  Receive Date: 20250916
  Receipt Date: 20250916
  Transmission Date: 20251021
  Serious: Yes (Other)
  Sender: ABBVIE
  Company Number: US-ABBVIE-6457342

PATIENT
  Sex: Female

DRUGS (1)
  1. REFRESH PLUS [Suspect]
     Active Substance: CARBOXYMETHYLCELLULOSE SODIUM
     Indication: Postoperative care
     Route: 047

REACTIONS (5)
  - Cataract [Unknown]
  - Multiple use of single-use product [Unknown]
  - Off label use [Unknown]
  - Cough [Unknown]
  - Reading disorder [Unknown]
